FAERS Safety Report 20938266 (Version 2)
Quarter: 2022Q2

REPORT INFORMATION
  Report Type: Spontaneous
  Country: US (occurrence: US)
  Receive Date: 20220609
  Receipt Date: 20220623
  Transmission Date: 20220721
  Serious: No
  Sender: FDA-Public Use
  Company Number: US-BRISTOL-MYERS SQUIBB COMPANY-2022-049329

PATIENT
  Age: 76 Year
  Sex: Female

DRUGS (2)
  1. REVLIMID [Suspect]
     Active Substance: LENALIDOMIDE
     Indication: Plasma cell myeloma
     Dosage: FREQ: DAILY ON DAYS 1-21OF EACH 28 DAYS CYCLE
     Route: 048
     Dates: start: 20190508
  2. REVLIMID [Suspect]
     Active Substance: LENALIDOMIDE
     Dosage: FREQUENCY-TAKE 1 CAPSULE (10MG) BY MOUTH ONCE ON DAYS 1-21 OF EACH 28 DAY CYCLE. TAKE WHOLE.
     Route: 048
     Dates: start: 20190508

REACTIONS (2)
  - Product distribution issue [Unknown]
  - Product dose omission issue [Unknown]
